FAERS Safety Report 8816696 (Version 1)
Quarter: 2012Q4

REPORT INFORMATION
  Report Type: Spontaneous
  Country: US (occurrence: None)
  Receive Date: 20120928
  Receipt Date: 20120928
  Transmission Date: 20130627
  Serious: Yes (Death)
  Sender: FDA-Public Use
  Company Number: 2012-0899

PATIENT

DRUGS (1)
  1. KYPROLIS [Suspect]
     Indication: DRUG USE FOR UNKNOWN INDICATION
     Dates: start: 201209

REACTIONS (2)
  - Respiratory failure [None]
  - Disease progression [None]
